FAERS Safety Report 12913294 (Version 1)
Quarter: 2016Q4

REPORT INFORMATION
  Report Type: Spontaneous
  Country: US (occurrence: US)
  Receive Date: 20161104
  Receipt Date: 20161104
  Transmission Date: 20170207
  Serious: No
  Sender: FDA-Public Use
  Company Number: US-WALMART PREMIER BRANDS OF AMERICA-1059254

PATIENT
  Sex: Female

DRUGS (4)
  1. ONE STEP WART REMOVER [Suspect]
     Active Substance: SALICYLIC ACID
     Route: 003
     Dates: start: 20161003, end: 20161005
  2. DULOXETINE. [Interacting]
     Active Substance: DULOXETINE
  3. METFORMIN [Interacting]
     Active Substance: METFORMIN HYDROCHLORIDE
  4. GABAPENTIN. [Interacting]
     Active Substance: GABAPENTIN

REACTIONS (3)
  - Lip swelling [Recovered/Resolved]
  - Nausea [None]
  - Headache [None]

NARRATIVE: CASE EVENT DATE: 20161003
